FAERS Safety Report 9981962 (Version 2)
Quarter: 2014Q1

REPORT INFORMATION
  Report Type: Report from Study
  Country: US (occurrence: US)
  Receive Date: 20140307
  Receipt Date: 20140307
  Transmission Date: 20141002
  Serious: No
  Sender: FDA-Public Use
  Company Number: US-ABBVIE-13P-163-1064032-00

PATIENT
  Sex: Female

DRUGS (6)
  1. HUMIRA [Suspect]
     Indication: RHEUMATOID ARTHRITIS
     Dates: start: 2007
  2. PLAQUENIL [Concomitant]
     Indication: RHEUMATOID ARTHRITIS
  3. PREDNISONE [Concomitant]
     Indication: RHEUMATOID ARTHRITIS
  4. FOLIC ACID [Concomitant]
     Indication: SUPPLEMENTATION THERAPY
  5. PRENATAL VITAMINS [Concomitant]
     Indication: PREGNANCY
  6. ZOLOFT [Concomitant]
     Indication: ANXIETY

REACTIONS (3)
  - Joint swelling [Recovered/Resolved]
  - Vomiting in pregnancy [Recovered/Resolved]
  - Arthralgia [Recovered/Resolved]
